FAERS Safety Report 5026866-2 (Version None)
Quarter: 2006Q2

REPORT INFORMATION
  Report Type: 
  Country: None (occurrence: None)
  Receive Date: 20060609
  Receipt Date: 20060529
  Transmission Date: 20061013
  Serious: Yes (Hospitalization)
  Sender: FDA-Public Use
  Company Number: 2006-00101

PATIENT
  Age: 77 Year
  Sex: Female
  Weight: 57 kg

DRUGS (3)
  1. VELCADE [Suspect]
     Indication: MANTLE CELL LYMPHOMA
     Dosage: 2.10 MG, INTRAVENOUS
     Route: 042
     Dates: start: 20050913, end: 20051024
  2. MODURETIC 5-50 [Suspect]
     Indication: HYPERTENSION
     Dosage: 1.00, ORAL
     Route: 048
     Dates: end: 20051025
  3. MODURETIC 5-50 [Suspect]
     Indication: HYPERTENSION
     Dosage: 1.00, ORAL
     Route: 048
     Dates: end: 20051121

REACTIONS (5)
  - COORDINATION ABNORMAL [None]
  - HYPOCHLORAEMIA [None]
  - HYPOKALAEMIA [None]
  - HYPONATRAEMIA [None]
  - VOMITING [None]
